FAERS Safety Report 21696574 (Version 1)
Quarter: 2022Q4

REPORT INFORMATION
  Report Type: Spontaneous
  Country: PT (occurrence: PT)
  Receive Date: 20221207
  Receipt Date: 20221207
  Transmission Date: 20230113
  Serious: Yes (Hospitalization, Other)
  Sender: FDA-Public Use
  Company Number: PT-JNJFOC-20221204901

PATIENT
  Age: 68 Year
  Sex: Male

DRUGS (1)
  1. IMBRUVICA [Suspect]
     Active Substance: IBRUTINIB
     Indication: Chronic lymphocytic leukaemia
     Route: 048

REACTIONS (6)
  - Staphylococcal bacteraemia [Recovering/Resolving]
  - Dermatosis [Unknown]
  - Thrombocytopenia [Unknown]
  - Septic pulmonary embolism [Recovering/Resolving]
  - Acariasis [Unknown]
  - Renal injury [Unknown]
